FAERS Safety Report 8451446-6 (Version None)
Quarter: 2012Q2

REPORT INFORMATION
  Report Type: 
  Country: None (occurrence: None)
  Receive Date: 20120620
  Receipt Date: 20120301
  Transmission Date: 20120825
  Serious: No
  Sender: FDA-Public Use
  Company Number: US-VERTEX PHARMACEUTICALS INC.-AE-2012-003016

PATIENT
  Sex: Male

DRUGS (7)
  1. INCIVEK [Suspect]
     Indication: HEPATITIS C
     Route: 048
     Dates: start: 20120209
  2. RIBAVIRIN [Concomitant]
     Indication: HEPATITIS C
     Route: 048
     Dates: start: 20120209
  3. LYRICA [Concomitant]
     Indication: NEURALGIA
     Route: 048
  4. PEGASYS [Concomitant]
     Indication: HEPATITIS C
     Route: 058
     Dates: start: 20120209
  5. TRAZODONE HCL [Concomitant]
     Indication: DEPRESSION
     Route: 048
  6. JANUVIA [Concomitant]
     Indication: DIABETES MELLITUS
     Route: 048
  7. PAXIL [Concomitant]
     Indication: DEPRESSION
     Route: 048

REACTIONS (4)
  - VOMITING [None]
  - DIARRHOEA [None]
  - DRUG DOSE OMISSION [None]
  - ABDOMINAL PAIN [None]
